FAERS Safety Report 11276577 (Version 1)
Quarter: 2015Q3

REPORT INFORMATION
  Report Type: Spontaneous
  Country: US (occurrence: None)
  Receive Date: 20150715
  Receipt Date: 20150715
  Transmission Date: 20151125
  Serious: Yes (Other)
  Sender: FDA-Public Use
  Company Number: None

PATIENT
  Age: 62 Year
  Sex: Male

DRUGS (1)
  1. UMENDA [Suspect]
     Active Substance: UNSPECIFIED INGREDIENT
     Dosage: ONE

REACTIONS (1)
  - Constipation [None]

NARRATIVE: CASE EVENT DATE: 20150709
